FAERS Safety Report 7738709-4 (Version None)
Quarter: 2011Q3

REPORT INFORMATION
  Report Type: 
  Country: None (occurrence: None)
  Receive Date: 20110908
  Receipt Date: 20110906
  Transmission Date: 20111222
  Serious: No
  Sender: FDA-Public Use
  Company Number: US-PFIZER INC-2011182850

PATIENT
  Sex: Female
  Weight: 97 kg

DRUGS (4)
  1. PRISTIQ [Suspect]
     Indication: MENOPAUSE
     Dosage: UNKNOWN DOSE ONCE A DAY
     Route: 048
     Dates: start: 20100101
  2. SYNTHROID [Concomitant]
     Indication: HYPOTHYROIDISM
     Dosage: UNK
  3. PRISTIQ [Suspect]
     Indication: MOOD ALTERED
  4. PRISTIQ [Suspect]
     Indication: IRRITABILITY

REACTIONS (2)
  - IRRITABILITY [None]
  - MEDICATION RESIDUE [None]
